FAERS Safety Report 8277324 (Version 7)
Quarter: 2014Q2

REPORT INFORMATION
  Report Type: Spontaneous
  Country: US (occurrence: US)
  Receive Date: 20111207
  Receipt Date: 20140418
  Transmission Date: 20141212
  Serious: Yes (Hospitalization)
  Sender: FDA-Public Use
  Company Number: US-BIOGENIDEC-2011BI045524

PATIENT
  Age: 48 Year
  Sex: Female

DRUGS (2)
  1. AVONEX [Suspect]
     Indication: MULTIPLE SCLEROSIS
     Route: 030
  2. AVONEX [Suspect]
     Indication: MULTIPLE SCLEROSIS
     Route: 030
     Dates: start: 20000501, end: 20111118

REACTIONS (8)
  - Pancreatitis [Recovered/Resolved]
  - Pancreatic necrosis [Recovered/Resolved]
  - Gastric infection [Not Recovered/Not Resolved]
  - Cholelithiasis [Unknown]
  - Bile duct stone [Recovered/Resolved]
  - Feeling abnormal [Recovered/Resolved]
  - Nuclear magnetic resonance imaging abnormal [Unknown]
  - Weight decreased [Recovered/Resolved]
